FAERS Safety Report 4360140-2 (Version None)
Quarter: 2004Q2

REPORT INFORMATION
  Report Type: 
  Country: None (occurrence: None)
  Receive Date: 20040514
  Receipt Date: 20040506
  Transmission Date: 20050107
  Serious: Yes (Other)
  Sender: FDA-Public Use
  Company Number: STA-AE-04-MTX-186

PATIENT
  Age: 58 Year
  Sex: Female

DRUGS (5)
  1. METHOTREXATE [Suspect]
     Indication: RHEUMATOID ARTHRITIS
     Dosage: 12.5 MG 1 X PER 1 WK, ORAL
     Route: 048
     Dates: start: 19980501, end: 20040201
  2. SULFASALAZINE [Concomitant]
  3. OMEPRAZOLE [Concomitant]
  4. PREMIQUE (CONJUGATED ESTROGENS/MEDROXYPROGESTERONE ACETATE) [Concomitant]
  5. INDOMETHACIN [Concomitant]

REACTIONS (2)
  - NON-HODGKIN'S LYMPHOMA [None]
  - PLEURAL EFFUSION [None]
